FAERS Safety Report 15588828 (Version 1)
Quarter: 2018Q4

REPORT INFORMATION
  Report Type: Spontaneous
  Country: ES (occurrence: ES)
  Receive Date: 20181106
  Receipt Date: 20181106
  Transmission Date: 20190205
  Serious: Yes (Death, Hospitalization, Other)
  Sender: FDA-Public Use
  Company Number: ES-ACCORD-090828

PATIENT
  Age: 62 Year
  Sex: Female

DRUGS (3)
  1. CISPLATIN. [Suspect]
     Active Substance: CISPLATIN
     Indication: NEUROENDOCRINE TUMOUR
     Dosage: 150 MG (2 DEGREE CICLO)
     Route: 042
     Dates: start: 20170403, end: 20170403
  2. ETOPOSIDE. [Interacting]
     Active Substance: ETOPOSIDE
     Indication: NEUROENDOCRINE TUMOUR
     Dosage: 150 MG (2ND CYCLE) (2ND CYCLE)
     Route: 042
     Dates: start: 20170403, end: 20170403
  3. FENTANYL. [Concomitant]
     Active Substance: FENTANYL
     Dosage: 50 MG
     Route: 062
     Dates: start: 20170214

REACTIONS (4)
  - Colitis [Fatal]
  - Pancreatitis acute [Fatal]
  - Distributive shock [Fatal]
  - Drug interaction [Unknown]

NARRATIVE: CASE EVENT DATE: 20170411
